FAERS Safety Report 4969619-3 (Version None)
Quarter: 2006Q1

REPORT INFORMATION
  Report Type: 
  Country: None (occurrence: None)
  Receive Date: 20060201
  Receipt Date: 20051221
  Transmission Date: 20060701
  Serious: No
  Sender: FDA-Public Use
  Company Number: 2005PV006144

PATIENT
  Age: 55 Year
  Sex: Female
  Weight: 131.0895 kg

DRUGS (1)
  1. BYETTA [Suspect]
     Indication: DIABETES MELLITUS NON-INSULIN-DEPENDENT
     Dosage: 5 MCG;BID;SC
     Route: 058
     Dates: start: 20051220

REACTIONS (2)
  - INJECTION SITE HAEMORRHAGE [None]
  - VISION BLURRED [None]
